FAERS Safety Report 4696483-2 (Version None)
Quarter: 2005Q2

REPORT INFORMATION
  Report Type: 
  Country: None (occurrence: None)
  Receive Date: 20050608
  Receipt Date: 20040816
  Transmission Date: 20051028
  Serious: Yes (Hospitalization)
  Sender: FDA-Public Use
  Company Number: A03200402760

PATIENT

DRUGS (1)
  1. ELOXATIN [Suspect]
     Dosage: NI - INTRAVENOUS NOS
     Route: 042

REACTIONS (1)
  - PULMONARY FIBROSIS [None]
